FAERS Safety Report 4978322-5 (Version None)
Quarter: 2006Q2

REPORT INFORMATION
  Report Type: 
  Country: None (occurrence: None)
  Receive Date: 20060420
  Receipt Date: 20060410
  Transmission Date: 20061013
  Serious: Yes (Hospitalization)
  Sender: FDA-Public Use
  Company Number: JP-BRISTOL-MYERS SQUIBB COMPANY-13345178

PATIENT

DRUGS (1)
  1. GATIFLOXACIN [Suspect]
     Route: 048

REACTIONS (1)
  - HYPERGLYCAEMIA [None]
